FAERS Safety Report 24091282 (Version 2)
Quarter: 2024Q3

REPORT INFORMATION
  Report Type: Spontaneous
  Country: IE (occurrence: IE)
  Receive Date: 20240715
  Receipt Date: 20240730
  Transmission Date: 20241016
  Serious: Yes (Other)
  Sender: JOHNSON AND JOHNSON
  Company Number: None

PATIENT
  Age: 51 Year
  Sex: Female

DRUGS (6)
  1. VERMOX [Suspect]
     Active Substance: MEBENDAZOLE
     Indication: Enterobiasis
     Route: 048
     Dates: start: 20240521, end: 2024
  2. VERMOX [Suspect]
     Active Substance: MEBENDAZOLE
     Route: 048
     Dates: start: 20240618
  3. ANTI HIST ALLERGY [Concomitant]
     Route: 048
  4. LYCLEAR CREAM RINSE [Concomitant]
     Indication: Lice infestation
     Dates: start: 20240531, end: 20240609
  5. XYLOMETAZOLINE HYDROCHLORIDE [Concomitant]
     Active Substance: XYLOMETAZOLINE HYDROCHLORIDE
     Route: 045
  6. ACETAMINOPHEN [Concomitant]
     Active Substance: ACETAMINOPHEN
     Indication: Sinus headache
     Dosage: PM
     Route: 048

REACTIONS (1)
  - Pruritus [Recovering/Resolving]

NARRATIVE: CASE EVENT DATE: 20240521
